FAERS Safety Report 6824024-X (Version None)
Quarter: 2010Q3

REPORT INFORMATION
  Report Type: 
  Country: None (occurrence: None)
  Receive Date: 20100708
  Receipt Date: 20061001
  Transmission Date: 20110219
  Serious: No
  Sender: FDA-Public Use
  Company Number: US-PFIZER INC-2006119446

PATIENT
  Sex: Female
  Weight: 63.5 kg

DRUGS (5)
  1. CHANTIX [Suspect]
     Dates: start: 20060924, end: 20060930
  2. NEXIUM [Concomitant]
  3. LEVOTHYROXINE SODIUM [Concomitant]
  4. ANALGESICS [Concomitant]
  5. FOSAMAX [Concomitant]

REACTIONS (2)
  - DRY THROAT [None]
  - DYSPHAGIA [None]
